FAERS Safety Report 7274299-0 (Version None)
Quarter: 2011Q1

REPORT INFORMATION
  Report Type: 
  Country: None (occurrence: None)
  Receive Date: 20110204
  Receipt Date: 20110124
  Transmission Date: 20110831
  Serious: Yes (Other)
  Sender: FDA-Public Use
  Company Number: ES-ELI_LILLY_AND_COMPANY-ES201101005797

PATIENT
  Sex: Female
  Weight: 69 kg

DRUGS (2)
  1. HUMALOG [Concomitant]
     Indication: DIABETES MELLITUS
     Dosage: 3 A DAY
     Route: 058
  2. FORTEO [Suspect]
     Indication: OSTEOPOROSIS
     Dosage: 20 UG, DAILY (1/D)
     Route: 058
     Dates: start: 20090422, end: 20101201

REACTIONS (1)
  - CHRONIC LEUKAEMIA [None]
